FAERS Safety Report 13118187 (Version 3)
Quarter: 2018Q1

REPORT INFORMATION
  Report Type: Spontaneous
  Country: US (occurrence: US)
  Receive Date: 20170116
  Receipt Date: 20180214
  Transmission Date: 20180508
  Serious: No
  Sender: FDA-Public Use
  Company Number: US-JNJFOC-20161217284

PATIENT
  Sex: Male

DRUGS (3)
  1. RIPSERDAL [Suspect]
     Active Substance: RISPERIDONE
     Indication: AGGRESSION
     Route: 048
     Dates: start: 20081201, end: 20091201
  2. RIPSERDAL [Suspect]
     Active Substance: RISPERIDONE
     Indication: DYSPHORIA
     Route: 048
     Dates: start: 20081201, end: 20091201
  3. RIPSERDAL [Suspect]
     Active Substance: RISPERIDONE
     Indication: CONDUCT DISORDER
     Route: 048
     Dates: start: 20081201, end: 20091201

REACTIONS (2)
  - Emotional disorder [Unknown]
  - Gynaecomastia [Unknown]
